FAERS Safety Report 12743546 (Version 3)
Quarter: 2016Q4

REPORT INFORMATION
  Report Type: Spontaneous
  Country: CH (occurrence: ES)
  Receive Date: 20160914
  Receipt Date: 20161014
  Transmission Date: 20170207
  Serious: Yes (Hospitalization)
  Sender: FDA-Public Use
  Company Number: CH-LPDUSPRD-20160802

PATIENT
  Age: 35 Year
  Sex: Female
  Weight: 78 kg

DRUGS (3)
  1. FERINJECT [Suspect]
     Active Substance: FERRIC CARBOXYMALTOSE
     Dosage: 1000 MG, 1 IN 1 TOTAL
     Route: 042
     Dates: start: 20160726, end: 20160726
  2. PF-00547659 (INVESTIGATIVE) [Suspect]
     Active Substance: INVESTIGATIONAL PRODUCT
     Dosage: 75 MG ONCE EVERY 4 WEEKS
     Route: 058
     Dates: start: 20140407, end: 20140703
  3. MEZAVANT [Concomitant]
     Active Substance: MESALAMINE
     Dosage: 4.8 GM
     Route: 048
     Dates: start: 2011

REACTIONS (5)
  - Vomiting [None]
  - Hypersensitivity [Recovered/Resolved]
  - General physical health deterioration [Recovered/Resolved]
  - Off label use [Unknown]
  - Pyrexia [Recovered/Resolved]

NARRATIVE: CASE EVENT DATE: 2015
